FAERS Safety Report 20779975 (Version 1)
Quarter: 2022Q2

REPORT INFORMATION
  Report Type: Spontaneous
  Country: IT (occurrence: IT)
  Receive Date: 20220503
  Receipt Date: 20220503
  Transmission Date: 20220720
  Serious: Yes (Other)
  Sender: FDA-Public Use
  Company Number: None

PATIENT
  Age: 43 Year
  Sex: Female
  Weight: 53 kg

DRUGS (2)
  1. TRAZIMERA [Suspect]
     Active Substance: TRASTUZUMAB-QYYP
     Indication: Breast cancer
     Dosage: 100 MG, WEEKLY
     Route: 042
     Dates: start: 20220304, end: 20220404
  2. PACLITAXEL [Concomitant]
     Active Substance: PACLITAXEL
     Dosage: 120 MG
     Route: 042
     Dates: start: 20220304, end: 20220404

REACTIONS (2)
  - Rash maculo-papular [Not Recovered/Not Resolved]
  - Folliculitis [Not Recovered/Not Resolved]

NARRATIVE: CASE EVENT DATE: 20220312
